FAERS Safety Report 20774967 (Version 1)
Quarter: 2022Q2

REPORT INFORMATION
  Report Type: Spontaneous
  Country: US (occurrence: US)
  Receive Date: 20220502
  Receipt Date: 20220502
  Transmission Date: 20220720
  Serious: No
  Sender: FDA-Public Use
  Company Number: US-009507513-2204USA001278

PATIENT
  Age: 45 Year
  Sex: Male

DRUGS (3)
  1. PRINIVIL [Suspect]
     Active Substance: LISINOPRIL
     Indication: Myocarditis
     Dosage: UNK
  2. COREG [Concomitant]
     Active Substance: CARVEDILOL
     Indication: Myocarditis
     Dosage: UNK
  3. COLCHICINE [Concomitant]
     Active Substance: COLCHICINE
     Indication: Myocarditis
     Dosage: UNK

REACTIONS (1)
  - Product use in unapproved indication [Unknown]
